FAERS Safety Report 24303101 (Version 2)
Quarter: 2024Q3

REPORT INFORMATION
  Report Type: Report from Study
  Country: US (occurrence: US)
  Receive Date: 20240910
  Receipt Date: 20240930
  Transmission Date: 20241016
  Serious: No
  Sender: SUNOVION
  Company Number: US-SUMITOMO PHARMA SWITZERLAND GMBH-2024SPA000201

PATIENT

DRUGS (2)
  1. ORGOVYX [Suspect]
     Active Substance: RELUGOLIX
     Indication: Prostate cancer
     Dosage: 360 MG
     Route: 048
     Dates: start: 20240617, end: 20240617
  2. ORGOVYX [Suspect]
     Active Substance: RELUGOLIX
     Dosage: 120 MG, QD
     Route: 048
     Dates: start: 20240618

REACTIONS (7)
  - Hepatic enzyme increased [Unknown]
  - Limb discomfort [Unknown]
  - Night sweats [Unknown]
  - Dizziness [Unknown]
  - Hyperhidrosis [Unknown]
  - Hot flush [Unknown]
  - Asthenia [Unknown]
